FAERS Safety Report 7765043-9 (Version None)
Quarter: 2011Q3

REPORT INFORMATION
  Report Type: 
  Country: None (occurrence: None)
  Receive Date: 20110921
  Receipt Date: 20110912
  Transmission Date: 20111222
  Serious: Yes (Hospitalization, Other)
  Sender: FDA-Public Use
  Company Number: US-BAYER-2011-068139

PATIENT
  Age: 38 Year
  Sex: Female
  Weight: 83.9 kg

DRUGS (3)
  1. YAZ [Suspect]
     Indication: PREMENSTRUAL SYNDROME
     Dosage: UNK
     Route: 048
     Dates: start: 20070501, end: 20101023
  2. TYLENOL-500 [Concomitant]
     Indication: MIGRAINE
  3. ALBUTEROL [Concomitant]
     Indication: ASTHMA

REACTIONS (7)
  - CHEST PAIN [None]
  - PULMONARY EMBOLISM [None]
  - PAIN IN EXTREMITY [None]
  - VISION BLURRED [None]
  - MIGRAINE [None]
  - DYSPNOEA [None]
  - ABORTION SPONTANEOUS [None]
